FAERS Safety Report 18695082 (Version 1)
Quarter: 2021Q1

REPORT INFORMATION
  Report Type: Spontaneous
  Country: US (occurrence: US)
  Receive Date: 20210102
  Receipt Date: 20210102
  Transmission Date: 20210419
  Serious: Yes (Life-Threatening, Hospitalization, Disabling)
  Sender: FDA-Public Use
  Company Number: None

PATIENT
  Age: 57 Year
  Sex: Male
  Weight: 112.5 kg

DRUGS (12)
  1. PRADAXA [Concomitant]
     Active Substance: DABIGATRAN ETEXILATE MESYLATE
  2. ROVUSTATIN [Concomitant]
     Active Substance: ROSUVASTATIN
  3. LISINOPRIL. [Concomitant]
     Active Substance: LISINOPRIL
  4. FOLIC ACID. [Concomitant]
     Active Substance: FOLIC ACID
  5. ALENDRONATE [Concomitant]
     Active Substance: ALENDRONATE SODIUM
  6. SPIRIVA [Concomitant]
     Active Substance: TIOTROPIUM BROMIDE MONOHYDRATE
  7. POTASSIUM CHLORIDE. [Concomitant]
     Active Substance: POTASSIUM CHLORIDE
  8. METOPROLOL. [Concomitant]
     Active Substance: METOPROLOL
  9. METHOTREXATE. [Concomitant]
     Active Substance: METHOTREXATE
  10. ADVAIR HFA [Concomitant]
     Active Substance: FLUTICASONE PROPIONATE\SALMETEROL XINAFOATE
  11. PREDNISONE. [Concomitant]
     Active Substance: PREDNISONE
  12. OZEMPIC [Suspect]
     Active Substance: SEMAGLUTIDE
     Indication: DIABETES MELLITUS
     Dosage: ?          QUANTITY:6 INJECTION(S);OTHER FREQUENCY:ONCE WEEKLY;OTHER ROUTE:INJECTION INTO ABDOMINAL AREA?
     Dates: start: 20201208, end: 20201223

REACTIONS (17)
  - Hypophagia [None]
  - Depressed level of consciousness [None]
  - SARS-CoV-2 test positive [None]
  - Hypotension [None]
  - Cough [None]
  - Sepsis [None]
  - Nausea [None]
  - Feeling abnormal [None]
  - Pancreatitis [None]
  - Somnolence [None]
  - Blood potassium decreased [None]
  - Retching [None]
  - Oxygen saturation decreased [None]
  - Pneumonia [None]
  - Diarrhoea [None]
  - Renal failure [None]
  - Asthenia [None]

NARRATIVE: CASE EVENT DATE: 20201208
